FAERS Safety Report 7010890-4 (Version None)
Quarter: 2010Q3

REPORT INFORMATION
  Report Type: 
  Country: None (occurrence: None)
  Receive Date: 20100923
  Receipt Date: 20100923
  Transmission Date: 20110219
  Serious: Yes (Life-Threatening)
  Sender: FDA-Public Use
  Company Number: None

PATIENT
  Sex: Male

DRUGS (8)
  1. ISOSORBIDE MONITRATE ER (IMDUR) 60MG BAYER SCHERING PHARMA [Suspect]
     Indication: CHEST PAIN
     Dosage: 60MG BID PO ON FOR AWHILE (YEARS?)
     Route: 048
  2. DOXAZOSIN 2MG UNKNOWN [Suspect]
     Indication: URINE FLOW DECREASED
     Dosage: 1/2 TABLET = 1MG QHS PO PM HAD 1ST + ONLY DOSE
     Route: 048
     Dates: start: 20000524
  3. LISINOPRIL [Concomitant]
  4. LEVOTHYROXINE SODIUM [Concomitant]
  5. ATENOLOL [Concomitant]
  6. ASPIRIN [Concomitant]
  7. VITAMINS [Concomitant]
  8. REDYEAST [Concomitant]

REACTIONS (5)
  - DRUG INTERACTION [None]
  - DYSSTASIA [None]
  - ROAD TRAFFIC ACCIDENT [None]
  - STUPOR [None]
  - TRANCE [None]
